FAERS Safety Report 7379272-X (Version None)
Quarter: 2011Q1

REPORT INFORMATION
  Report Type: 
  Country: None (occurrence: None)
  Receive Date: 20110328
  Receipt Date: 20101221
  Transmission Date: 20110831
  Serious: Yes (Hospitalization)
  Sender: FDA-Public Use
  Company Number: DE-AMGEN-DEUNI2010003309

PATIENT
  Age: 15 Year
  Sex: Male

DRUGS (12)
  1. CALCIUM [Concomitant]
     Dosage: 1.2 G, UNK
  2. ROCALTROL [Concomitant]
     Dosage: 0.25 A?G, UNK
  3. LASIX [Concomitant]
  4. BICA                               /00108001/ [Concomitant]
     Dosage: 1 G, UNK
  5. BUDENOFALK [Concomitant]
     Dosage: 3 MG, UNK
  6. DECORTIN [Concomitant]
  7. METOBETA [Concomitant]
  8. CYCLOSPORINE [Concomitant]
  9. MAGNESIUM [Concomitant]
     Dosage: 10 MG, UNK
  10. CALCIUM ACETATE [Concomitant]
     Dosage: 500 MG, UNK
  11. GENOTROPIN [Concomitant]
     Dosage: 2 MG, UNK
  12. DARBEPOETIN ALFA [Suspect]
     Indication: RENAL FAILURE CHRONIC
     Dosage: 15 A?G, QWK
     Route: 042
     Dates: start: 20040827

REACTIONS (1)
  - BLOOD CREATININE INCREASED [None]
